APPROVED DRUG PRODUCT: NEMBUTAL
Active Ingredient: PENTOBARBITAL
Strength: 18.2MG/5ML
Dosage Form/Route: ELIXIR;ORAL
Application: A083244 | Product #001
Applicant: SCIEGEN PHARMACEUTICALS INC
Approved: Approved Prior to Jan 1, 1982 | RLD: No | RS: No | Type: DISCN